FAERS Safety Report 7384431-6 (Version None)
Quarter: 2011Q1

REPORT INFORMATION
  Report Type: 
  Country: None (occurrence: None)
  Receive Date: 20110322
  Receipt Date: 20110317
  Transmission Date: 20110831
  Serious: Yes (Other)
  Sender: FDA-Public Use
  Company Number: A0918665A

PATIENT
  Age: 75 Year
  Sex: Male

DRUGS (1)
  1. UREA PEROXIDE [Suspect]

REACTIONS (1)
  - DEAFNESS [None]
